FAERS Safety Report 8020618-7 (Version None)
Quarter: 2012Q1

REPORT INFORMATION
  Report Type: 
  Country: None (occurrence: None)
  Receive Date: 20120103
  Receipt Date: 20111222
  Transmission Date: 20120608
  Serious: Yes (Other)
  Sender: FDA-Public Use
  Company Number: US-ASTRAZENECA-2011SE78093

PATIENT
  Age: 62 Year
  Sex: Male

DRUGS (7)
  1. PRILOSEC [Suspect]
     Route: 048
  2. TRIAMCINOLONE [Concomitant]
     Dosage: 0.1 PERCENT CR APP AA BID
  3. SOMA [Concomitant]
  4. VICODIN [Concomitant]
     Dosage: 5/500MG 1 TAB Q6H
  5. SIMVASTATIN [Concomitant]
  6. NEXIUM [Suspect]
     Route: 048
  7. ASPIRIN [Concomitant]

REACTIONS (13)
  - INGUINAL HERNIA [None]
  - TINNITUS [None]
  - CHOLECYSTITIS ACUTE [None]
  - LINEAR IGA DISEASE [None]
  - INTERVERTEBRAL DISC PROTRUSION [None]
  - HYPERTENSION [None]
  - DYSPHONIA [None]
  - CORONARY ARTERY DISEASE [None]
  - MIGRAINE [None]
  - ABDOMINAL PAIN [None]
  - MYOCARDIAL INFARCTION [None]
  - OROPHARYNGEAL PAIN [None]
  - HYPOACUSIS [None]
